FAERS Safety Report 5600723-2 (Version None)
Quarter: 2008Q1

REPORT INFORMATION
  Report Type: 
  Country: None (occurrence: None)
  Receive Date: 20080123
  Receipt Date: 20080116
  Transmission Date: 20080703
  Serious: Yes (Hospitalization)
  Sender: FDA-Public Use
  Company Number: US-MERCK-0801USA03521

PATIENT
  Age: 76 Year
  Sex: Female

DRUGS (7)
  1. FOSAMAX [Suspect]
     Indication: OSTEOPOROSIS
     Route: 048
  2. CRESTOR [Concomitant]
     Route: 065
  3. HYDROCHLOROTHIAZIDE AND SPIRONOLACTONE [Concomitant]
     Route: 065
  4. MELOXICAM [Concomitant]
     Route: 065
  5. SERTRALINE HYDROCHLORIDE [Concomitant]
     Route: 065
  6. ATENOLOL [Concomitant]
     Route: 065
  7. NEXIUM [Concomitant]
     Route: 065

REACTIONS (2)
  - COMA [None]
  - SEPTIC SHOCK [None]
